FAERS Safety Report 4677632-9 (Version None)
Quarter: 2005Q2

REPORT INFORMATION
  Report Type: 
  Country: None (occurrence: None)
  Receive Date: 20050531
  Receipt Date: 20050518
  Transmission Date: 20051028
  Serious: Yes (Death)
  Sender: FDA-Public Use
  Company Number: GB-MERCK-0505GBR00151

PATIENT
  Age: 80 Year
  Sex: Female

DRUGS (10)
  1. DECADRON [Suspect]
     Route: 048
     Dates: end: 20031008
  2. TIOTROPIUM BROMIDE [Suspect]
     Indication: CHRONIC OBSTRUCTIVE PULMONARY DISEASE
     Route: 055
  3. LACTULOSE [Suspect]
     Route: 065
  4. LANSOPRAZOLE [Suspect]
     Route: 048
  5. ACETAMINOPHEN [Suspect]
     Route: 048
  6. QUININE [Suspect]
     Route: 048
  7. ALBUTEROL [Suspect]
     Route: 055
  8. SENNA [Suspect]
     Route: 048
  9. FLUTICASONE PROPIONATE AND SALMETEROL XINAFOATE [Suspect]
     Route: 055
  10. CETOSTEARYL ALCOHOL AND PHENOXYETHANOL AND SODIUM LAURYL SULFATE [Concomitant]
     Route: 065

REACTIONS (1)
  - NON-HODGKIN'S LYMPHOMA [None]
